FAERS Safety Report 9340552 (Version 1)
Quarter: 2013Q2

REPORT INFORMATION
  Report Type: Spontaneous
  Country: US (occurrence: US)
  Receive Date: 20130610
  Receipt Date: 20130610
  Transmission Date: 20140414
  Serious: Yes (Congenital Anomaly, Other)
  Sender: FDA-Public Use
  Company Number: US-TEVA-410977USA

PATIENT
  Age: 0 Year
  Sex: Female

DRUGS (3)
  1. NUVIGIL [Suspect]
  2. PRENATAL VITAMINS [Concomitant]
     Indication: PREGNANCY
     Dates: start: 201207
  3. SYMBICORT [Concomitant]
     Indication: ASTHMA
     Dates: start: 2009, end: 201207

REACTIONS (2)
  - Congenital skin dimples [Unknown]
  - Congenital renal disorder [Unknown]
